FAERS Safety Report 20905739 (Version 1)
Quarter: 2022Q2

REPORT INFORMATION
  Report Type: Spontaneous
  Country: FR (occurrence: FR)
  Receive Date: 20220602
  Receipt Date: 20220602
  Transmission Date: 20220720
  Serious: Yes (Hospitalization)
  Sender: FDA-Public Use
  Company Number: None

PATIENT
  Age: 39 Year
  Sex: Female
  Weight: 84 kg

DRUGS (4)
  1. VENLAFAXINE [Suspect]
     Active Substance: VENLAFAXINE HYDROCHLORIDE
     Indication: Intentional overdose
     Dosage: NP,THERAPY DURATION : 1 DAYS
     Route: 048
     Dates: start: 20210503, end: 20210503
  2. ALPRAZOLAM [Suspect]
     Active Substance: ALPRAZOLAM
     Indication: Intentional overdose
     Dosage: NP,THERAPY DURATION : 1 DAYS
     Route: 048
     Dates: start: 20210503, end: 20210503
  3. CLOZAPINE [Suspect]
     Active Substance: CLOZAPINE
     Indication: Intentional overdose
     Dosage: NP,THERAPY DURATION : 1 DAYS
     Route: 048
     Dates: start: 20210503, end: 20210503
  4. TROPATEPINE HYDROCHLORIDE [Suspect]
     Active Substance: TROPATEPINE HYDROCHLORIDE
     Indication: Intentional overdose
     Dosage: NP, THERAPY DURATION : 1 DAYS
     Route: 048
     Dates: start: 20210503, end: 20210503

REACTIONS (3)
  - Serotonin syndrome [Recovered/Resolved]
  - Coma [Recovered/Resolved]
  - Poisoning deliberate [Recovered/Resolved]

NARRATIVE: CASE EVENT DATE: 20210503
